FAERS Safety Report 4831226-0 (Version None)
Quarter: 2005Q4

REPORT INFORMATION
  Report Type: 
  Country: None (occurrence: None)
  Receive Date: 20051116
  Receipt Date: 20051102
  Transmission Date: 20060501
  Serious: Yes (Death)
  Sender: FDA-Public Use
  Company Number: S05-USA-04894-01

PATIENT
  Age: 92 Year
  Sex: Male

DRUGS (2)
  1. COMBUNOX (OXYCODONE/IBUPROFEN) [Suspect]
     Indication: BACK PAIN
     Dates: start: 20050101, end: 20050101
  2. COMBUNOX (OXYCODONE/IBUPROFEN) [Suspect]
     Indication: SCOLIOSIS
     Dates: start: 20050101, end: 20050101

REACTIONS (2)
  - INTESTINAL INFARCTION [None]
  - INTESTINAL ISCHAEMIA [None]
